FAERS Safety Report 24666294 (Version 1)
Quarter: 2024Q4

REPORT INFORMATION
  Report Type: Spontaneous
  Country: ZA (occurrence: ZA)
  Receive Date: 20241126
  Receipt Date: 20241126
  Transmission Date: 20250114
  Serious: Yes (Other)
  Sender: AMERICAN REGENT
  Company Number: ZA-AMERICAN REGENT INC-2024004375

PATIENT
  Age: 39 Year
  Sex: Female

DRUGS (2)
  1. FERINJECT [Suspect]
     Active Substance: FERRIC CARBOXYMALTOSE
     Indication: Iron deficiency anaemia
     Dosage: 2000 MG X 2 INFUSIONS (2000 MG)
     Dates: start: 20230608, end: 20230608
  2. IRON POLYMALTOSE [Concomitant]
     Active Substance: IRON POLYMALTOSE
     Indication: Product used for unknown indication
     Dosage: UNK
     Route: 065

REACTIONS (2)
  - Blood iron decreased [Unknown]
  - Overdose [Unknown]

NARRATIVE: CASE EVENT DATE: 20230608
